FAERS Safety Report 14352154 (Version 3)
Quarter: 2018Q3

REPORT INFORMATION
  Report Type: Spontaneous
  Country: US (occurrence: US)
  Receive Date: 20180104
  Receipt Date: 20180927
  Transmission Date: 20181010
  Serious: No
  Sender: FDA-Public Use
  Company Number: US-PFIZER INC-2017551406

PATIENT
  Age: 76 Year
  Sex: Female
  Weight: 84.35 kg

DRUGS (16)
  1. FUROSEMIDE. [Concomitant]
     Active Substance: FUROSEMIDE
     Indication: PERIPHERAL SWELLING
     Dosage: 40 MG, ONCE A DAY AS NEEDED
  2. MELATONIN [Concomitant]
     Active Substance: MELATONIN
     Dosage: 3 MG
  3. MELATONIN [Concomitant]
     Active Substance: MELATONIN
     Dosage: 5 MG, DAILY (5MG AT BEDTIME)
  4. FISH OIL [Concomitant]
     Active Substance: FISH OIL
     Dosage: 100 MG, 2X/DAY
  5. SIMVASTATIN. [Concomitant]
     Active Substance: SIMVASTATIN
     Dosage: 40 MG, DAILY (40MG AT BEDTIME)
  6. CALCIUM WITH VITAMIN D [Concomitant]
     Active Substance: CALCIUM\VITAMIN D
     Dosage: 500 MG, 2X/DAY
  7. VITAMIN C [Concomitant]
     Active Substance: ASCORBIC ACID
     Dosage: 500 MG, 2X/DAY
  8. XELJANZ XR [Suspect]
     Active Substance: TOFACITINIB CITRATE
     Indication: RHEUMATOID ARTHRITIS
     Dosage: 11 MG, ONCE DAILY
     Dates: start: 2017, end: 20180125
  9. LEVOTHYROXINE. [Concomitant]
     Active Substance: LEVOTHYROXINE
     Indication: THYROID DISORDER
     Dosage: 100 UG, 1X/DAY
  10. VITAMIN E [Concomitant]
     Active Substance: .ALPHA.-TOCOPHEROL
     Dosage: 400 IU, 1X/DAY (400 UNITS ONCE A DAY)
  11. RANITIDINE. [Concomitant]
     Active Substance: RANITIDINE
     Dosage: 150 MG, 2X/DAY
  12. HYDROCHLOROTHIAZIDE/LISINOPRIL [Concomitant]
     Dosage: [HYDROCHLOROTHIAZIDE 12.5MG]/[LISINOPRIL 10MG], ONCE A DAY
  13. NADOLOL. [Concomitant]
     Active Substance: NADOLOL
     Dosage: 40 MG, 1X/DAY
  14. POTASSIUM CHLORIDE. [Concomitant]
     Active Substance: POTASSIUM CHLORIDE
     Dosage: 120 MEQ, DAILY
  15. POTASSIUM CHLORIDE. [Concomitant]
     Active Substance: POTASSIUM CHLORIDE
     Dosage: 40 MEQ, DAILY
  16. ACETAMINOPHEN AND CODEINE [Concomitant]
     Active Substance: ACETAMINOPHEN\CODEINE PHOSPHATE
     Indication: PAIN
     Dosage: [ACETAMINOPHEN 325MG]/[CODEINE 10MG], AS NEEDED EVERY 4 HOURS

REACTIONS (4)
  - Malaise [Unknown]
  - Influenza [Recovered/Resolved]
  - Cough [Unknown]
  - Dysphagia [Unknown]

NARRATIVE: CASE EVENT DATE: 20180125
